FAERS Safety Report 21147361 (Version 1)
Quarter: 2022Q3

REPORT INFORMATION
  Report Type: Spontaneous
  Country: US (occurrence: US)
  Receive Date: 20220729
  Receipt Date: 20220729
  Transmission Date: 20221027
  Serious: Yes (Hospitalization)
  Sender: FDA-Public Use
  Company Number: US-MYLANLABS-2022M1081954

PATIENT
  Age: 23 Year
  Sex: Male

DRUGS (3)
  1. ESTRADIOL [Suspect]
     Active Substance: ESTRADIOL
     Indication: Transgender hormonal therapy
     Dosage: 0.25 MILLILITER, QW
     Route: 065
  2. ESTRADIOL [Suspect]
     Active Substance: ESTRADIOL
     Dosage: 1 MILLILITER, QW
     Route: 065
  3. SPIRONOLACTONE [Concomitant]
     Active Substance: SPIRONOLACTONE
     Indication: Transgender hormonal therapy
     Dosage: UNK
     Route: 065

REACTIONS (3)
  - Intentional product misuse [Unknown]
  - Intentional overdose [Unknown]
  - Ischaemic stroke [Unknown]
